FAERS Safety Report 25673421 (Version 2)
Quarter: 2025Q4

REPORT INFORMATION
  Report Type: Spontaneous
  Country: US (occurrence: US)
  Receive Date: 20250813
  Receipt Date: 20251024
  Transmission Date: 20260118
  Serious: Yes (Other)
  Sender: AMGEN
  Company Number: US-002147023-NVSC2025US124908

PATIENT
  Sex: Male

DRUGS (27)
  1. ERENUMAB [Suspect]
     Active Substance: ERENUMAB
     Indication: Headache
     Dosage: 70 MG, QMO
     Route: 065
  2. ERENUMAB [Suspect]
     Active Substance: ERENUMAB
     Indication: Intracranial aneurysm
  3. ERENUMAB [Suspect]
     Active Substance: ERENUMAB
     Indication: Subarachnoid haemorrhage
  4. VALPROIC ACID [Concomitant]
     Active Substance: VALPROIC ACID
     Indication: Seizure
     Dosage: UNK
     Route: 065
  5. ACETAMINOPHEN [Concomitant]
     Active Substance: ACETAMINOPHEN
     Indication: Headache
     Dosage: UNK (TAPER)
     Route: 065
  6. ACETAMINOPHEN [Concomitant]
     Active Substance: ACETAMINOPHEN
     Indication: Subarachnoid haemorrhage
  7. ACETAMINOPHEN [Concomitant]
     Active Substance: ACETAMINOPHEN
     Indication: Intracranial aneurysm
  8. MAGNESIUM [Concomitant]
     Active Substance: MAGNESIUM
     Indication: Supplementation therapy
     Dosage: UNK
     Route: 065
  9. MAGNESIUM [Concomitant]
     Active Substance: MAGNESIUM
     Indication: Subarachnoid haemorrhage
  10. MAGNESIUM [Concomitant]
     Active Substance: MAGNESIUM
     Indication: Headache
  11. MAGNESIUM [Concomitant]
     Active Substance: MAGNESIUM
     Indication: Intracranial aneurysm
  12. RIBOFLAVIN [Concomitant]
     Active Substance: RIBOFLAVIN
     Indication: Supplementation therapy
     Dosage: UNK
     Route: 065
  13. RIBOFLAVIN [Concomitant]
     Active Substance: RIBOFLAVIN
     Indication: Subarachnoid haemorrhage
  14. RIBOFLAVIN [Concomitant]
     Active Substance: RIBOFLAVIN
     Indication: Intracranial aneurysm
  15. RIBOFLAVIN [Concomitant]
     Active Substance: RIBOFLAVIN
     Indication: Headache
  16. FEVERFEW [Concomitant]
     Active Substance: FEVERFEW
     Indication: Supplementation therapy
     Dosage: UNK
     Route: 065
  17. FEVERFEW [Concomitant]
     Active Substance: FEVERFEW
     Indication: Subarachnoid haemorrhage
  18. FEVERFEW [Concomitant]
     Active Substance: FEVERFEW
     Indication: Intracranial aneurysm
  19. FEVERFEW [Concomitant]
     Active Substance: FEVERFEW
     Indication: Headache
  20. AMITRIPTYLINE [Concomitant]
     Active Substance: AMITRIPTYLINE
     Indication: Headache
     Dosage: 30 MG, QD
     Route: 065
  21. AMITRIPTYLINE [Concomitant]
     Active Substance: AMITRIPTYLINE
     Indication: Subarachnoid haemorrhage
  22. AMITRIPTYLINE [Concomitant]
     Active Substance: AMITRIPTYLINE
     Indication: Intracranial aneurysm
  23. NORTRIPTYLINE [Concomitant]
     Active Substance: NORTRIPTYLINE
     Indication: Headache
     Dosage: 10 MG, QD (AT NIGHT)
     Route: 065
  24. NORTRIPTYLINE [Concomitant]
     Active Substance: NORTRIPTYLINE
     Indication: Subarachnoid haemorrhage
  25. NORTRIPTYLINE [Concomitant]
     Active Substance: NORTRIPTYLINE
     Indication: Intracranial aneurysm
  26. LAMOTRIGINE [Concomitant]
     Active Substance: LAMOTRIGINE
     Indication: Seizure
     Dosage: UNK
     Route: 065
  27. METOPROLOL [Concomitant]
     Active Substance: METOPROLOL
     Indication: Hypertension
     Dosage: UNK
     Route: 065

REACTIONS (1)
  - Off label use [Unknown]
